FAERS Safety Report 9975202 (Version 1)
Quarter: 2014Q1

REPORT INFORMATION
  Report Type: Report from Study
  Country: US (occurrence: US)
  Receive Date: 20140306
  Receipt Date: 20140306
  Transmission Date: 20141002
  Serious: No
  Sender: FDA-Public Use
  Company Number: US-ABBVIE-13P-163-1161383-00

PATIENT
  Age: 50 Year
  Sex: Female

DRUGS (18)
  1. HUMIRA [Suspect]
     Indication: COLITIS ULCERATIVE
     Dates: start: 20130923, end: 20130923
  2. HUMIRA [Suspect]
     Dates: start: 20131007, end: 20131007
  3. HUMIRA [Suspect]
     Dates: start: 20131022
  4. DELZICOL [Concomitant]
     Indication: COLITIS ULCERATIVE
     Dosage: 6 CAPLETS, TWICE DAILY
     Route: 048
  5. BLACK COHOSH [Concomitant]
     Indication: NIGHT SWEATS
  6. DILTIAZEM ER [Concomitant]
     Indication: HYPERTENSION
     Route: 048
  7. BENAZEPRIL [Concomitant]
     Indication: HYPERTENSION
  8. LASIX [Concomitant]
     Indication: HYPERTENSION
  9. POTASSIUM CHLORIDE [Concomitant]
     Indication: PRODUCT USED FOR UNKNOWN INDICATION
  10. PROTONIX [Concomitant]
     Indication: HIATUS HERNIA
  11. PROTONIX [Concomitant]
     Indication: GASTROOESOPHAGEAL REFLUX DISEASE
  12. VITAMIN D [Concomitant]
     Indication: COLITIS ULCERATIVE
  13. MERCAPTOPURINE [Concomitant]
     Indication: PRODUCT USED FOR UNKNOWN INDICATION
  14. VIIBRYD [Concomitant]
     Indication: DEPRESSION
  15. OXYCODONE [Concomitant]
     Indication: PAIN
     Dosage: 5-325MG, AS NEEDED, 1 TO 2 TIMES PER DAY
     Route: 048
  16. OMEGA 3 [Concomitant]
     Indication: PRODUCT USED FOR UNKNOWN INDICATION
  17. MAGNESIUM [Concomitant]
     Indication: PRODUCT USED FOR UNKNOWN INDICATION
  18. TURMERIC [Concomitant]
     Indication: PRODUCT USED FOR UNKNOWN INDICATION

REACTIONS (2)
  - Fatigue [Not Recovered/Not Resolved]
  - Injection site bruising [Unknown]
